FAERS Safety Report 7452682 (Version 3)
Quarter: 2020Q3

REPORT INFORMATION
  Report Type: Report from Study
  Country: NL (occurrence: NL)
  Receive Date: 20100702
  Receipt Date: 20110216
  Transmission Date: 20201105
  Serious: Yes (Hospitalization)
  Sender: FDA-Public Use
  Company Number: NL-JNJFOC-20100606711

PATIENT
  Age: 31 Year
  Sex: Female
  Weight: 69.2 kg

DRUGS (11)
  1. PLACEBO [Suspect]
     Active Substance: UNSPECIFIED INGREDIENT
     Indication: CROHN^S DISEASE
     Route: 042
  2. USTEKINUMAB [Suspect]
     Active Substance: USTEKINUMAB
     Route: 042
  3. ISOSORBIDE DINITRATE. [Concomitant]
     Active Substance: ISOSORBIDE DINITRATE
     Indication: CROHN^S DISEASE
     Route: 054
  4. USTEKINUMAB [Suspect]
     Active Substance: USTEKINUMAB
     Route: 042
  5. DILTIAZEM. [Concomitant]
     Active Substance: DILTIAZEM
     Route: 061
  6. DIPROSONE [Concomitant]
     Active Substance: BETAMETHASONE DIPROPIONATE
     Indication: CROHN^S DISEASE
     Route: 054
  7. ENTOCORT EC [Concomitant]
     Active Substance: BUDESONIDE
     Indication: CROHN^S DISEASE
     Route: 048
  8. USTEKINUMAB [Suspect]
     Active Substance: USTEKINUMAB
     Route: 058
  9. ACTONEL [Concomitant]
     Active Substance: RISEDRONATE SODIUM
     Route: 048
  10. USTEKINUMAB [Suspect]
     Active Substance: USTEKINUMAB
     Indication: CROHN^S DISEASE
     Route: 058
  11. BECLOMETASON [Concomitant]
     Route: 061

REACTIONS (1)
  - Anal abscess [Recovered/Resolved]

NARRATIVE: CASE EVENT DATE: 20100618
